FAERS Safety Report 4413592-3 (Version None)
Quarter: 2004Q2

REPORT INFORMATION
  Report Type: 
  Country: None (occurrence: None)
  Receive Date: 20040630
  Receipt Date: 20040506
  Transmission Date: 20050107
  Serious: No
  Sender: FDA-Public Use
  Company Number: 04P-163-0259854-00

PATIENT
  Age: 61 Year
  Sex: Female
  Weight: 65.7716 kg

DRUGS (9)
  1. HUMIRA [Suspect]
     Indication: RHEUMATOID ARTHRITIS
     Dosage: 40 MG, 1 IN 2 WK, SUBCUTANEOUS
     Route: 058
     Dates: start: 20040331, end: 20010421
  2. CELECOXIB [Concomitant]
  3. HYDROXYCHLOROQUINE SULFATE [Concomitant]
  4. RISEDRONATE SODIUM [Concomitant]
  5. RALOXIFENE HCL [Concomitant]
  6. RANITIDINE [Concomitant]
  7. FOLIC ACID [Concomitant]
  8. MULTI-VITAMINS [Concomitant]
  9. CALCIUM [Concomitant]

REACTIONS (1)
  - RASH [None]
